FAERS Safety Report 6888374-3 (Version None)
Quarter: 2010Q3

REPORT INFORMATION
  Report Type: 
  Country: None (occurrence: None)
  Receive Date: 20100730
  Receipt Date: 20100726
  Transmission Date: 20110219
  Serious: Yes (Congenital Anomaly)
  Sender: FDA-Public Use
  Company Number: AR-GILEAD-2010-0030670

PATIENT
  Sex: Male

DRUGS (8)
  1. TENOFOVIR DISOPROXIL FUMARATE [Suspect]
     Indication: HIV INFECTION
     Route: 064
     Dates: start: 20060202, end: 20060221
  2. KALETRA [Concomitant]
     Indication: HIV INFECTION
     Route: 064
     Dates: start: 20060202, end: 20060221
  3. VIRAMUNE [Concomitant]
     Indication: HIV INFECTION
     Route: 064
     Dates: start: 20040810, end: 20050718
  4. VIRAMUNE [Concomitant]
     Route: 064
     Dates: start: 20050830, end: 20060201
  5. COMBIVIR [Concomitant]
     Indication: HIV INFECTION
     Route: 064
     Dates: start: 20040810, end: 20050718
  6. COMBIVIR [Concomitant]
     Route: 064
     Dates: start: 20050830, end: 20060221
  7. FERROUS SULFATE [Concomitant]
     Route: 064
  8. MULTI-VITAMINS [Concomitant]
     Route: 064

REACTIONS (1)
  - TALIPES [None]
